FAERS Safety Report 19062227 (Version 1)
Quarter: 2021Q1

REPORT INFORMATION
  Report Type: Spontaneous
  Country: NL (occurrence: NL)
  Receive Date: 20210326
  Receipt Date: 20210326
  Transmission Date: 20210420
  Serious: Yes (Death, Other)
  Sender: FDA-Public Use
  Company Number: NL-AMGEN-NLDSP2021045808

PATIENT

DRUGS (7)
  1. TALIMOGENE LAHERPAREPVEC [Suspect]
     Active Substance: TALIMOGENE LAHERPAREPVEC
     Dosage: UNK (10^8  PFU/ML  EVERY 2 WEEKS, EXCEPT FOR THE SECOND DOSE WHICH WAS ADMINISTERED 3 WEEKS AFTER TH
     Route: 026
  2. TRAMETINIB [Concomitant]
     Active Substance: TRAMETINIB
     Dosage: UNK
     Dates: start: 201801
  3. VEMURAFENIB. [Concomitant]
     Active Substance: VEMURAFENIB
     Dosage: UNK
     Dates: start: 201808
  4. PEMBROLIZUMAB. [Concomitant]
     Active Substance: PEMBROLIZUMAB
     Dosage: UNK
     Dates: start: 201802
  5. TALIMOGENE LAHERPAREPVEC [Suspect]
     Active Substance: TALIMOGENE LAHERPAREPVEC
     Indication: METASTATIC MALIGNANT MELANOMA
     Dosage: UNK (10^6 PLAQUE?FORMING UNITS (PFU)/ML)
     Route: 026
     Dates: start: 201709
  6. COBIMETINIB. [Concomitant]
     Active Substance: COBIMETINIB
     Dosage: UNK
     Dates: start: 201808
  7. DABRAFENIB [Concomitant]
     Active Substance: DABRAFENIB
     Dosage: UNK
     Dates: start: 201801

REACTIONS (5)
  - Death [Fatal]
  - General physical health deterioration [Unknown]
  - Nausea [Unknown]
  - Vomiting [Unknown]
  - Metastatic malignant melanoma [Unknown]

NARRATIVE: CASE EVENT DATE: 201712
